FAERS Safety Report 20489165 (Version 1)
Quarter: 2022Q1

REPORT INFORMATION
  Report Type: 
  Country: US (occurrence: US)
  Receive Date: 20220218
  Receipt Date: 20220218
  Transmission Date: 20220423
  Serious: Yes (Hospitalization, Other)
  Sender: FDA-Public Use
  Company Number: US-Stemline Therapeutics, Inc.-2022ST000021

PATIENT
  Age: 39 Year
  Sex: Male

DRUGS (1)
  1. ELZONRIS [Suspect]
     Active Substance: TAGRAXOFUSP-ERZS
     Indication: Blastic plasmacytoid dendritic cell neoplasia
     Route: 042

REACTIONS (2)
  - Sepsis [Recovering/Resolving]
  - Febrile neutropenia [Recovering/Resolving]
